FAERS Safety Report 5352163-1 (Version None)
Quarter: 2007Q2

REPORT INFORMATION
  Report Type: 
  Country: None (occurrence: None)
  Receive Date: 20070606
  Receipt Date: 20070522
  Transmission Date: 20071010
  Serious: Yes (Other)
  Sender: FDA-Public Use
  Company Number: CIP07000920

PATIENT
  Age: 12 Year
  Sex: Male

DRUGS (2)
  1. ASACOL [Suspect]
  2. PENTASA [Suspect]

REACTIONS (1)
  - PERICARDIAL EFFUSION [None]
